FAERS Safety Report 17889793 (Version 1)
Quarter: 2020Q2

REPORT INFORMATION
  Report Type: Spontaneous
  Country: DE (occurrence: DE)
  Receive Date: 20200612
  Receipt Date: 20200612
  Transmission Date: 20200714
  Serious: Yes (Hospitalization, Other)
  Sender: FDA-Public Use
  Company Number: DE-HRARD-202000449

PATIENT
  Sex: Female
  Weight: 1.74 kg

DRUGS (6)
  1. PARACETAMOL [Concomitant]
     Active Substance: ACETAMINOPHEN
     Indication: EXPOSURE DURING PREGNANCY
     Route: 064
  2. METHYLDOPA. [Concomitant]
     Active Substance: METHYLDOPA
     Indication: EXPOSURE DURING PREGNANCY
     Route: 064
  3. TRAMADOL. [Concomitant]
     Active Substance: TRAMADOL
     Indication: EXPOSURE DURING PREGNANCY
     Route: 064
  4. POTASSIUM SUPPLEMENTATION [Concomitant]
     Indication: EXPOSURE DURING PREGNANCY
     Route: 064
  5. METYRAPONE [Suspect]
     Active Substance: METYRAPONE
     Indication: EXPOSURE DURING PREGNANCY
     Route: 062
  6. HYDROCORTISONE. [Concomitant]
     Active Substance: HYDROCORTISONE
     Indication: EXPOSURE DURING PREGNANCY
     Route: 064

REACTIONS (3)
  - Maternal exposure during pregnancy [Recovered/Resolved]
  - Premature baby [Recovered/Resolved]
  - Glucocorticoid deficiency [Recovered/Resolved]
